FAERS Safety Report 13663859 (Version 1)
Quarter: 2017Q2

REPORT INFORMATION
  Report Type: Spontaneous
  Country: US (occurrence: US)
  Receive Date: 20170619
  Receipt Date: 20170619
  Transmission Date: 20170830
  Serious: No
  Sender: FDA-Public Use
  Company Number: US-TEVA-673787USA

PATIENT
  Age: 61 Year
  Sex: Female

DRUGS (6)
  1. PEPCID [Concomitant]
     Active Substance: FAMOTIDINE
  2. COZAAR [Concomitant]
     Active Substance: LOSARTAN POTASSIUM
  3. TRAMADOL. [Suspect]
     Active Substance: TRAMADOL
     Indication: PAIN
  4. CLONAPIN [Concomitant]
     Active Substance: CLONAZEPAM
  5. SINEQUAN [Concomitant]
     Active Substance: DOXEPIN HYDROCHLORIDE
     Indication: DEPRESSION
  6. TRAMADOL. [Suspect]
     Active Substance: TRAMADOL
     Indication: ARTHRITIS
     Route: 048
     Dates: start: 201605

REACTIONS (7)
  - Panic attack [Unknown]
  - Nervousness [Unknown]
  - Feeling jittery [Unknown]
  - Depression [Unknown]
  - Hyperhidrosis [Unknown]
  - Incoherent [Unknown]
  - Anxiety [Unknown]

NARRATIVE: CASE EVENT DATE: 201605
